FAERS Safety Report 21710954 (Version 1)
Quarter: 2022Q4

REPORT INFORMATION
  Report Type: Report from Study
  Country: US (occurrence: US)
  Receive Date: 20221212
  Receipt Date: 20221212
  Transmission Date: 20230113
  Serious: No
  Sender: FDA-Public Use
  Company Number: US-ABBVIE-22K-163-4484970-00

PATIENT
  Sex: Male

DRUGS (1)
  1. IMBRUVICA [Suspect]
     Active Substance: IBRUTINIB
     Indication: Chronic lymphocytic leukaemia
     Route: 048
     Dates: start: 201805

REACTIONS (13)
  - Immunoglobulins decreased [Unknown]
  - Post-traumatic stress disorder [Unknown]
  - Haematocrit decreased [Unknown]
  - Illness [Unknown]
  - Red cell distribution width increased [Unknown]
  - Haemoglobin abnormal [Unknown]
  - Gastrointestinal disorder [Unknown]
  - Oedema peripheral [Unknown]
  - Hypersensitivity [Unknown]
  - Respiratory tract infection [Unknown]
  - Viral infection [Unknown]
  - Pyrexia [Unknown]
  - Cough [Unknown]
